FAERS Safety Report 9909216 (Version 1)
Quarter: 2014Q1

REPORT INFORMATION
  Report Type: Report from Study
  Country: CN (occurrence: CN)
  Receive Date: 20140219
  Receipt Date: 20140219
  Transmission Date: 20141002
  Serious: Yes (Other)
  Sender: FDA-Public Use
  Company Number: CN-SA-2014SA017310

PATIENT
  Age: 51 Year
  Sex: Male

DRUGS (5)
  1. ALEMTUZUMAB [Suspect]
     Indication: IMMUNOSUPPRESSION
     Route: 065
  2. FLUDARABINE PHOSPHATE [Suspect]
     Indication: IMMUNOSUPPRESSION
     Route: 065
  3. VALGANCICLOVIR [Concomitant]
     Indication: PROPHYLAXIS
     Dosage: 900 MG PER DAY, THRICE WEEKLY
  4. SULFAMETHOXAZOLE/TRIMETHOPRIM [Concomitant]
     Indication: PROPHYLAXIS
     Dosage: TWICE DAILY, 02 DAYS PER WEEK.
  5. ITRACONAZOLE [Concomitant]
     Indication: PROPHYLAXIS

REACTIONS (2)
  - Hodgkin^s disease [Unknown]
  - Epstein-Barr virus infection [Unknown]
